FAERS Safety Report 12183767 (Version 1)
Quarter: 2016Q1

REPORT INFORMATION
  Report Type: Spontaneous
  Country: US (occurrence: US)
  Receive Date: 20160316
  Receipt Date: 20160316
  Transmission Date: 20160526
  Serious: Yes (Hospitalization, Other)
  Sender: FDA-Public Use
  Company Number: US-PFIZER INC-2016157072

PATIENT
  Age: 72 Year
  Sex: Male
  Weight: 111 kg

DRUGS (6)
  1. BUMEX [Concomitant]
     Active Substance: BUMETANIDE
     Dosage: 2 MG, UNK
  2. ZAROXOLYN [Concomitant]
     Active Substance: METOLAZONE
     Dosage: UNK
  3. POTASSIUM CHLORIDE. [Concomitant]
     Active Substance: POTASSIUM CHLORIDE
     Indication: HYPOKALAEMIA
     Dosage: 50 MG, 1 TABLESPOON OF LIQUID, 1X/DAY
     Route: 048
  4. COREG [Concomitant]
     Active Substance: CARVEDILOL
     Indication: CARDIAC DISORDER
     Dosage: 25 MG, 2X/DAY
     Route: 048
  5. REVATIO [Suspect]
     Active Substance: SILDENAFIL CITRATE
     Indication: HEART RATE INCREASED
     Dosage: 20 MG, 3X/DAY
     Route: 048
  6. THYROXINE [Concomitant]
     Active Substance: LEVOTHYROXINE
     Indication: HYPOTHYROIDISM
     Dosage: 200 MG, 1X/DAY
     Route: 048

REACTIONS (8)
  - Oxygen saturation decreased [Recovering/Resolving]
  - Dyspnoea [Recovering/Resolving]
  - Peripheral swelling [Unknown]
  - Pleural effusion [Recovering/Resolving]
  - Dyspnoea exertional [Unknown]
  - Condition aggravated [Unknown]
  - Fluid retention [Unknown]
  - Asthenia [Recovering/Resolving]
